FAERS Safety Report 8764176 (Version 2)
Quarter: 2012Q4

REPORT INFORMATION
  Report Type: 
  Country: DE (occurrence: DE)
  Receive Date: 20120831
  Receipt Date: 20120906
  Transmission Date: 20130627
  Serious: Yes (Hospitalization, Other)
  Sender: FDA-Public Use
  Company Number: DE-UCBSA-064499

PATIENT
  Age: 81 Year
  Sex: Female

DRUGS (8)
  1. KEPPRA [Suspect]
     Indication: PARTIAL SEIZURES WITH SECONDARY GENERALISATION
     Dosage: 1000 MG MORNING AND 500 MG EVENING ; ROUTE: VIS GASTRIC TUBE
     Dates: start: 201205
  2. AMLODIPINE [Concomitant]
     Indication: HYPERTENSION
     Dosage: ROUTE: VIA GASTRIC TUBE
  3. MARCUMAR [Concomitant]
     Indication: CEREBRAL HAEMORRHAGE
     Dosage: DOSE PER INTAKE: VARIES ; TOTAL DAILY DOSE: VARIES ; ROUTE: VIA GASTRIC TUBE
  4. ALLOPURINOL 100 [Concomitant]
     Indication: HYPERURICAEMIA
     Dosage: STRENGTH: 100 ; ROUTE: VIA GASTRIC TUBE
  5. RAMIPRIL [Concomitant]
     Indication: HYPERTENSION
     Dosage: ROUTE: VIA GASTRIC TUBE
  6. RAMIPRIL COMP ACTAVIS [Concomitant]
     Indication: HYPERTENSION
     Dosage: DOSE PER INTAKE: 5 MG/12.5 MG ; DAILY DOSE:5 MG/12.5 MG ; ROUTE: VIA GASTRIC TUBE
  7. BISOPROLOL [Concomitant]
     Indication: HYPERTENSION
     Dosage: DOSE PER INTAKE: 5 MG ; NO. OF INTAKES PER DAY: 2.5 MG ; DAILY DOSE:2.5 MG ; ROUTE: VIA GASTRIC TUBE
  8. FENTANYL [Concomitant]
     Indication: PAIN
     Dosage: DOSE PER INTAKE:50/MICROGRAM/H
     Route: 062
     Dates: start: 201205

REACTIONS (7)
  - Tachycardia [Recovering/Resolving]
  - Hypertensive crisis [Recovering/Resolving]
  - Grand mal convulsion [Recovered/Resolved]
  - Hallucination [Not Recovered/Not Resolved]
  - Medication error [Unknown]
  - Drug dispensing error [Unknown]
  - Drug prescribing error [Unknown]
